FAERS Safety Report 7535453-3 (Version None)
Quarter: 2011Q2

REPORT INFORMATION
  Report Type: 
  Country: None (occurrence: None)
  Receive Date: 20110609
  Receipt Date: 20080602
  Transmission Date: 20111010
  Serious: Yes (Death)
  Sender: FDA-Public Use
  Company Number: PHHY2008US09148

PATIENT
  Sex: Female

DRUGS (7)
  1. MAGNESIUM OXIDE [Concomitant]
  2. PROTONIX [Concomitant]
  3. LASIX [Concomitant]
  4. KLOR-CON [Concomitant]
  5. EXJADE [Suspect]
     Dosage: UNK
     Route: 048
     Dates: start: 20070705
  6. TRANSFUSIONS [Concomitant]
  7. LISINOPRIL [Concomitant]

REACTIONS (1)
  - DEATH [None]
